FAERS Safety Report 4501968-5 (Version None)
Quarter: 2004Q4

REPORT INFORMATION
  Report Type: 
  Country: None (occurrence: None)
  Receive Date: 20041115
  Receipt Date: 20041115
  Transmission Date: 20050328
  Serious: Yes (Hospitalization)
  Sender: FDA-Public Use
  Company Number: None

PATIENT
  Age: 89 Year
  Sex: Female
  Weight: 52 kg

DRUGS (2)
  1. DARVOCET-N 100 [Suspect]
     Indication: ARTHRALGIA
     Dosage: 100MG   Q6H  ORAL
     Route: 048
     Dates: start: 20040901, end: 20041108
  2. DARVOCET-N 100 [Suspect]
     Indication: BURSITIS
     Dosage: 100MG   Q6H  ORAL
     Route: 048
     Dates: start: 20040901, end: 20041108

REACTIONS (5)
  - ARTHRALGIA [None]
  - NAUSEA [None]
  - TREMOR [None]
  - URINARY TRACT INFECTION [None]
  - VOMITING [None]
